FAERS Safety Report 9030315 (Version 1)
Quarter: 2013Q1

REPORT INFORMATION
  Report Type: Spontaneous
  Country: GB (occurrence: GB)
  Receive Date: 20130122
  Receipt Date: 20130122
  Transmission Date: 20140127
  Serious: Yes (Hospitalization, Other)
  Sender: FDA-Public Use
  Company Number: GB-PFIZER INC-2013021498

PATIENT
  Age: 62 Year
  Sex: Male

DRUGS (17)
  1. TAZOCIN [Suspect]
     Indication: PNEUMONIA
     Dosage: 4.5 G, 2X/DAY
     Route: 042
     Dates: start: 20121207, end: 20121217
  2. VANCOMYCIN [Concomitant]
     Dosage: 1 G, UNK
     Route: 042
     Dates: start: 20121107
  3. NOVORAPID [Concomitant]
     Dosage: 10 IU, UNK
     Route: 058
     Dates: start: 20121107
  4. GABAPENTIN [Concomitant]
     Dosage: 100 MG, UNK
     Route: 048
     Dates: start: 20121115
  5. CODEINE PHOSPHATE [Concomitant]
     Indication: PAIN
     Dosage: 15-30MG, 4 TIMES A DAY
     Route: 048
     Dates: start: 20121108
  6. LANTHANUM CARBONATE [Concomitant]
     Dosage: 750 MG, 3X/DAY MORNING, MIDDAY, EVENING
     Route: 048
     Dates: start: 20121108
  7. INSULIN [Concomitant]
  8. EPADERM [Concomitant]
     Dosage: 1 DF, 3X/DAY MORNING, MIDDAY AND EVENING
     Route: 061
     Dates: start: 20121109
  9. ASPIRIN [Concomitant]
     Dosage: 75 MG, 1X/DAY MORNING
     Route: 048
     Dates: start: 20121107
  10. CLOPIDOGREL [Concomitant]
     Dosage: 75 MG, 1X/DAY MORNING
     Route: 048
     Dates: start: 20121107
  11. ISOSORBIDE MONONITRATE [Concomitant]
     Dosage: 10 MG, 2X/DAY MORNING AND MIDDAY
     Route: 048
     Dates: start: 20121107
  12. CITALOPRAM [Concomitant]
     Dosage: 40 MG, 1X/DAY MORNING
     Route: 048
     Dates: start: 20121107, end: 20121108
  13. OMACOR [Concomitant]
     Dosage: 1 DF, 1X/DAY MORNING
     Route: 048
  14. OMEPRAZOLE [Concomitant]
     Dosage: 20 MG, 1X/DAY MORNING
     Route: 048
     Dates: start: 20121107
  15. ALFACALCIDOL [Concomitant]
     Dosage: 0.25 UG, 1X/DAY MORNING
     Route: 048
     Dates: start: 20121107
  16. EZETIMIBE [Concomitant]
     Dosage: 10 MG, 1X/DAY BEDTIME
     Route: 048
     Dates: start: 20121107
  17. PARACETAMOL [Concomitant]
     Dosage: 1 G, 4X/DAY MORNING, MIDDAY, EVENING, BEDTIME
     Route: 048
     Dates: start: 20121107

REACTIONS (2)
  - Acute hepatic failure [Recovering/Resolving]
  - Cholestasis [Recovering/Resolving]
